FAERS Safety Report 6330047-X (Version None)
Quarter: 2009Q3

REPORT INFORMATION
  Report Type: 
  Country: None (occurrence: None)
  Receive Date: 20090825
  Receipt Date: 20090814
  Transmission Date: 20100115
  Serious: Yes (Other)
  Sender: FDA-Public Use
  Company Number: 2009AL002550

PATIENT
  Sex: Female

DRUGS (1)
  1. DIGOXIN [Suspect]
     Dosage: PO
     Route: 048

REACTIONS (30)
  - ACCIDENT [None]
  - AORTIC VALVE DISEASE [None]
  - ARTHRALGIA [None]
  - ATRIAL FIBRILLATION [None]
  - ATRIAL FLUTTER [None]
  - CHEST DISCOMFORT [None]
  - CONTUSION [None]
  - DYSPHAGIA [None]
  - DYSPNOEA [None]
  - ECONOMIC PROBLEM [None]
  - EJECTION FRACTION DECREASED [None]
  - EMBOLIC STROKE [None]
  - EMBOLISM [None]
  - FALL [None]
  - HEART RATE INCREASED [None]
  - HEMIPARESIS [None]
  - ILL-DEFINED DISORDER [None]
  - INTRACARDIAC THROMBUS [None]
  - MALAISE [None]
  - MENTAL STATUS CHANGES [None]
  - MULTIPLE INJURIES [None]
  - PAIN IN EXTREMITY [None]
  - PALPITATIONS [None]
  - PERIPHERAL COLDNESS [None]
  - PERIPHERAL ISCHAEMIA [None]
  - SURGERY [None]
  - TENDERNESS [None]
  - TREATMENT NONCOMPLIANCE [None]
  - URINARY TRACT INFECTION [None]
  - VENOUS THROMBOSIS LIMB [None]
